FAERS Safety Report 8922170 (Version 2)
Quarter: 2012Q4

REPORT INFORMATION
  Report Type: 
  Country: DE (occurrence: DE)
  Receive Date: 20121123
  Receipt Date: 20121231
  Transmission Date: 20130627
  Serious: Yes (Hospitalization)
  Sender: FDA-Public Use
  Company Number: PHHY2012DE105337

PATIENT
  Sex: Male
  Weight: 75 kg

DRUGS (13)
  1. EXELON PATCH [Suspect]
     Indication: DEMENTIA
     Dosage: 4.6 mg/ 24 hrs
     Route: 062
     Dates: end: 2011
  2. EXELON PATCH [Suspect]
     Dosage: 9.5 mg/ 24 hrs
     Route: 062
     Dates: start: 2011, end: 2012
  3. AMANTADINE [Concomitant]
     Indication: PARKINSON^S DISEASE
  4. MADOPAR [Concomitant]
     Indication: PARKINSON^S DISEASE
  5. STALEVO [Concomitant]
     Indication: PARKINSON^S DISEASE
  6. NACOM [Concomitant]
     Indication: PARKINSON^S DISEASE
  7. ACLASTA [Concomitant]
     Indication: OSTEOPOROSIS
  8. AZILECT [Concomitant]
     Indication: PARKINSON^S DISEASE
  9. EUCREAS [Concomitant]
     Indication: DIABETES MELLITUS
  10. GLIMEPIRIDE [Concomitant]
     Indication: DIABETES MELLITUS
  11. RAMIPRIL [Concomitant]
  12. TAMSUBLOCK [Concomitant]
     Indication: BLADDER DISORDER
  13. DEKRISTOL [Concomitant]
     Indication: OSTEOPOROSIS
     Dosage: 20000 IU, QMO

REACTIONS (3)
  - Basal cell carcinoma [Recovered/Resolved]
  - Drug administration error [Unknown]
  - Application site erythema [Not Recovered/Not Resolved]
